FAERS Safety Report 4347692-3 (Version None)
Quarter: 2004Q2

REPORT INFORMATION
  Report Type: 
  Country: None (occurrence: None)
  Receive Date: 20040422
  Receipt Date: 20040413
  Transmission Date: 20050107
  Serious: Yes (Death)
  Sender: FDA-Public Use
  Company Number: US-JNJFOC-20040402943

PATIENT
  Sex: Male

DRUGS (2)
  1. RISPERDAL [Suspect]
     Indication: SCHIZOPHRENIA
     Dosage: ORAL
     Route: 048
  2. ANTIPSYCHOTICS (ANTIPSYCHOTICS) [Concomitant]

REACTIONS (1)
  - ROAD TRAFFIC ACCIDENT [None]
